FAERS Safety Report 14340040 (Version 3)
Quarter: 2018Q1

REPORT INFORMATION
  Report Type: Spontaneous
  Country: JP (occurrence: JP)
  Receive Date: 20171231
  Receipt Date: 20180202
  Transmission Date: 20180509
  Serious: Yes (Death, Life-Threatening, Hospitalization, Other)
  Sender: FDA-Public Use
  Company Number: JP-TEVA-2017-JP-842115

PATIENT
  Age: 70 Year
  Sex: Male

DRUGS (7)
  1. DEXAMETHASONE. [Concomitant]
     Active Substance: DEXAMETHASONE
     Indication: PROPHYLAXIS OF NAUSEA AND VOMITING
     Dosage: 19.8 MILLIGRAM DAILY; 19.8 MG, ONCE DAILY
     Route: 041
     Dates: start: 20171024, end: 20171025
  2. WARFARIN [Concomitant]
     Active Substance: WARFARIN
     Indication: DISEASE COMPLICATION
     Dosage: 37.5 MILLIGRAM DAILY;
     Route: 048
     Dates: end: 20170123
  3. GRANISETRON [Concomitant]
     Active Substance: GRANISETRON
     Indication: PROPHYLAXIS OF NAUSEA AND VOMITING
     Dosage: 3 MILLIGRAM DAILY;
     Route: 041
     Dates: start: 20171024, end: 20171025
  4. BENDAMUSTINE HYDROCHLORIDE. [Suspect]
     Active Substance: BENDAMUSTINE HYDROCHLORIDE
     Indication: MANTLE CELL LYMPHOMA
     Route: 042
     Dates: start: 20171024, end: 20171025
  5. RITUXIMAB. [Concomitant]
     Active Substance: RITUXIMAB
     Indication: MANTLE CELL LYMPHOMA
     Dosage: 375 MG/M2 DAILY; 375 MG/M2 X1/DAY, ONCE DAILY
     Route: 041
     Dates: start: 20171018
  6. BISOPROLOL FUMARATE. [Concomitant]
     Active Substance: BISOPROLOL FUMARATE
     Indication: DISEASE COMPLICATION
     Dosage: 2.5 MILLIGRAM DAILY;
     Route: 048
     Dates: end: 20171027
  7. TRIMETHOPRIM SULFAMETHOXAZOLE [Concomitant]
     Active Substance: SULFAMETHOXAZOLE\TRIMETHOPRIM
     Indication: INFECTION PROPHYLAXIS
     Dosage: .4286 GRAM DAILY;
     Route: 048
     Dates: start: 20171023, end: 20171027

REACTIONS (7)
  - Hypoxic-ischaemic encephalopathy [Fatal]
  - Ventricular extrasystoles [Not Recovered/Not Resolved]
  - Bone marrow failure [Unknown]
  - Prescribed underdose [Unknown]
  - Respiratory arrest [Fatal]
  - Cardiac arrest [Not Recovered/Not Resolved]
  - Atrial fibrillation [Not Recovered/Not Resolved]

NARRATIVE: CASE EVENT DATE: 20171024
